FAERS Safety Report 8507219-9 (Version None)
Quarter: 2012Q3

REPORT INFORMATION
  Report Type: 
  Country: None (occurrence: None)
  Receive Date: 20120712
  Receipt Date: 20120703
  Transmission Date: 20120928
  Serious: Yes (Life-Threatening, Hospitalization)
  Sender: FDA-Public Use
  Company Number: CA-FRI-1000036965

PATIENT
  Age: 58 Year
  Sex: Male
  Weight: 82 kg

DRUGS (4)
  1. SEROQUEL [Suspect]
     Dosage: 100 MG
  2. SEROQUEL [Suspect]
     Dosage: 50 MG
  3. CELEXA [Suspect]
     Dosage: 60 MG
     Route: 048
  4. SEROQUEL [Suspect]
     Dosage: 50 MG

REACTIONS (5)
  - TROPONIN INCREASED [None]
  - OVERDOSE [None]
  - BLOOD CREATINE PHOSPHOKINASE INCREASED [None]
  - TORSADE DE POINTES [None]
  - CARDIO-RESPIRATORY ARREST [None]
